FAERS Safety Report 5264499-3 (Version None)
Quarter: 2007Q1

REPORT INFORMATION
  Report Type: 
  Country: None (occurrence: None)
  Receive Date: 20070314
  Receipt Date: 20070305
  Transmission Date: 20070707
  Serious: Yes (Other)
  Sender: FDA-Public Use
  Company Number: 2007UW04187

PATIENT
  Sex: Female

DRUGS (1)
  1. ARIMIDEX [Suspect]
     Route: 048
     Dates: start: 20040101

REACTIONS (3)
  - CATARACT [None]
  - RENAL FUNCTION TEST ABNORMAL [None]
  - VITREOUS FLOATERS [None]
